FAERS Safety Report 7153866-9 (Version None)
Quarter: 2010Q4

REPORT INFORMATION
  Report Type: 
  Country: None (occurrence: None)
  Receive Date: 20101213
  Receipt Date: 20101011
  Transmission Date: 20110411
  Serious: No
  Sender: FDA-Public Use
  Company Number: US-ABBOTT-10P-163-0677263-00

PATIENT
  Sex: Female
  Weight: 95.34 kg

DRUGS (2)
  1. MERIDIA [Suspect]
     Indication: WEIGHT DECREASED
     Dates: start: 20100501, end: 20100701
  2. ATENOLOL [Concomitant]
     Indication: HYPERTENSION

REACTIONS (3)
  - BACK PAIN [None]
  - CHEST PAIN [None]
  - PALPITATIONS [None]
